FAERS Safety Report 9506943 (Version 3)
Quarter: 2013Q4

REPORT INFORMATION
  Report Type: Spontaneous
  Country: IT (occurrence: IT)
  Receive Date: 20130909
  Receipt Date: 20131105
  Transmission Date: 20140711
  Serious: Yes (Hospitalization, Other)
  Sender: FDA-Public Use
  Company Number: IT-MERCK-1309ITA001951

PATIENT
  Age: 66 Year
  Sex: Female
  Weight: 63 kg

DRUGS (8)
  1. REBETOL [Suspect]
     Indication: CHRONIC HEPATITIS C
     Dosage: 600 MG, DAILY
     Route: 048
     Dates: start: 20130517
  2. TELAPREVIR [Suspect]
     Indication: CHRONIC HEPATITIS C
     Dosage: TOTAL DAILY DOSE: 6 DOSE (UNIT), DAILY
     Route: 048
     Dates: start: 20130517, end: 20130726
  3. PEGASYS [Suspect]
     Indication: CHRONIC HEPATITIS C
     Dosage: 180 MICROGRAM, WEEKLY
     Route: 058
     Dates: start: 20130517
  4. NEBIVOLOL [Concomitant]
     Indication: HYPERTENSION
  5. VALSARTAN [Concomitant]
     Indication: HYPERTENSION
  6. LEVOTHYROXINE SODIUM [Concomitant]
     Indication: HYPOTHYROIDISM
     Dosage: 25 MCG
     Dates: start: 20130712
  7. NEORECORMON [Concomitant]
     Indication: ANAEMIA
     Dosage: 30 000 IU PRE-FILLED SYRINGE, 1 DOSE (UNIT)
     Dates: start: 20130620, end: 20130812
  8. MOXIFLOXACIN HYDROCHLORIDE [Concomitant]
     Indication: PYREXIA
     Dosage: UNK
     Dates: start: 20130719, end: 20130720

REACTIONS (1)
  - Drug reaction with eosinophilia and systemic symptoms [Recovered/Resolved]
